FAERS Safety Report 25713565 (Version 1)
Quarter: 2025Q3

REPORT INFORMATION
  Report Type: Spontaneous
  Country: GB (occurrence: GB)
  Receive Date: 20250822
  Receipt Date: 20250822
  Transmission Date: 20251021
  Serious: Yes (Other)
  Sender: TEVA
  Company Number: None

PATIENT

DRUGS (1)
  1. LOSARTAN [Suspect]
     Active Substance: LOSARTAN
     Indication: Adverse drug reaction
     Route: 065
     Dates: end: 20250803

REACTIONS (5)
  - Dizziness [Not Recovered/Not Resolved]
  - Nausea [Unknown]
  - Diarrhoea [Recovering/Resolving]
  - Vomiting projectile [Recovered/Resolved]
  - Vision blurred [Not Recovered/Not Resolved]

NARRATIVE: CASE EVENT DATE: 20250531
